FAERS Safety Report 24739954 (Version 1)
Quarter: 2024Q4

REPORT INFORMATION
  Report Type: Spontaneous
  Country: US (occurrence: US)
  Receive Date: 20241216
  Receipt Date: 20241216
  Transmission Date: 20250115
  Serious: Yes (Hospitalization, Other)
  Sender: BRISTOL-MYERS SQUIBB COMPANY
  Company Number: US-BRISTOL-MYERS SQUIBB COMPANY-2024-190049

PATIENT
  Age: 78 Year
  Sex: Male
  Weight: 136.08 kg

DRUGS (18)
  1. REVLIMID [Suspect]
     Active Substance: LENALIDOMIDE
     Indication: Plasma cell myeloma
     Route: 048
     Dates: start: 20241017
  2. FISH OIL [Concomitant]
     Active Substance: FISH OIL
     Dosage: CPDR
  3. ALPRAZOLAM [Concomitant]
     Active Substance: ALPRAZOLAM
  4. RYBELSUS [Concomitant]
     Active Substance: SEMAGLUTIDE
  5. ZOLPIDEM TARTRATE [Concomitant]
     Active Substance: ZOLPIDEM TARTRATE
  6. METRONIDAZOLE [Concomitant]
     Active Substance: METRONIDAZOLE
  7. AMOXICILLIN [Concomitant]
     Active Substance: AMOXICILLIN
  8. AMLODIPINE BESYLATE [Concomitant]
     Active Substance: AMLODIPINE BESYLATE
  9. EZETIMIBE [Concomitant]
     Active Substance: EZETIMIBE
  10. LEVOTHYROXINE SODIUM [Concomitant]
     Active Substance: LEVOTHYROXINE SODIUM
  11. FINASTERIDE [Concomitant]
     Active Substance: FINASTERIDE
     Route: 048
  12. ALLOPURINOL [Concomitant]
     Active Substance: ALLOPURINOL
     Route: 048
  13. ATORVASTATIN [Concomitant]
     Active Substance: ATORVASTATIN
  14. CLOPIDOGREL BISULFATE [Concomitant]
     Active Substance: CLOPIDOGREL BISULFATE
  15. DEXAMETHASONE [Concomitant]
     Active Substance: DEXAMETHASONE
  16. ESZOPICLONE [Concomitant]
     Active Substance: ESZOPICLONE
  17. LOSARTAN AND HYDROCHLOROTHIAZIDE [Concomitant]
     Active Substance: HYDROCHLOROTHIAZIDE\LOSARTAN POTASSIUM
     Dosage: 100-12.5 MG
  18. METOPROLOL TARTRATE [Concomitant]
     Active Substance: METOPROLOL TARTRATE
     Dosage: RIS

REACTIONS (5)
  - Thrombosis [Recovering/Resolving]
  - Chronic kidney disease [Recovering/Resolving]
  - Asthenia [Recovering/Resolving]
  - Dyspnoea [Recovering/Resolving]
  - Off label use [Unknown]
